FAERS Safety Report 9643635 (Version 2)
Quarter: 2013Q4

REPORT INFORMATION
  Report Type: Spontaneous
  Country: US (occurrence: US)
  Receive Date: 20131024
  Receipt Date: 20131114
  Transmission Date: 20140711
  Serious: Yes (Hospitalization)
  Sender: FDA-Public Use
  Company Number: US-PFIZER INC-2013304078

PATIENT
  Age: 69 Year
  Sex: Female
  Weight: 56.7 kg

DRUGS (2)
  1. CHAPSTICK CLASSIC ORIGINAL [Suspect]
     Indication: CHAPPED LIPS
     Dosage: UNK
  2. CHAPSTICK CLASSIC ORIGINAL [Suspect]
     Indication: LIP DRY

REACTIONS (5)
  - Gallbladder disorder [Unknown]
  - Lip injury [Unknown]
  - Scratch [Unknown]
  - Poor quality drug administered [Unknown]
  - Wrong technique in drug usage process [Unknown]
